FAERS Safety Report 21322739 (Version 1)
Quarter: 2022Q3

REPORT INFORMATION
  Report Type: Spontaneous
  Country: IT (occurrence: IT)
  Receive Date: 20220912
  Receipt Date: 20220912
  Transmission Date: 20221027
  Serious: Yes (Hospitalization)
  Sender: FDA-Public Use
  Company Number: None

PATIENT
  Age: 74 Year
  Sex: Female
  Weight: 77 kg

DRUGS (1)
  1. OLUMIANT [Suspect]
     Active Substance: BARICITINIB
     Indication: Rheumatoid arthritis
     Dosage: 2 MG, UNA COMPRESSA/DIE
     Route: 065
     Dates: start: 20180601, end: 20220731

REACTIONS (1)
  - Diverticulitis intestinal perforated [Recovered/Resolved]

NARRATIVE: CASE EVENT DATE: 20210701
